FAERS Safety Report 8775257 (Version 5)
Quarter: 2012Q4

REPORT INFORMATION
  Report Type: Report from Study
  Country: DE (occurrence: DE)
  Receive Date: 20120910
  Receipt Date: 20121030
  Transmission Date: 20130627
  Serious: Yes (Hospitalization)
  Sender: FDA-Public Use
  Company Number: DE-AMGEN-DEUCT2012055003

PATIENT
  Age: 58 Year
  Sex: Male
  Weight: 107 kg

DRUGS (7)
  1. ETANERCEPT [Suspect]
     Indication: PSORIASIS
     Dosage: 50 mg, 2x/week
     Route: 058
     Dates: start: 20120723, end: 20120822
  2. METFORMIN [Concomitant]
     Indication: TYPE 2 DIABETES MELLITUS
     Dosage: 850 UNK, UNK
  3. TAMSULOSIN [Concomitant]
     Indication: BENIGN PROSTATIC HYPERPLASIA
     Dosage: UNK
  4. DAIVOBET [Concomitant]
     Indication: PSORIASIS
     Dosage: UNK
     Dates: start: 201206
  5. ECURAL [Concomitant]
     Indication: PSORIASIS
     Dosage: UNK UNK, bid
     Dates: start: 201206
  6. ECURAL [Concomitant]
     Dosage: UNK
  7. XAMIOL [Concomitant]
     Indication: PSORIASIS
     Dosage: 1 in 2 days
     Dates: start: 201206

REACTIONS (4)
  - Chills [Not Recovered/Not Resolved]
  - Oedema peripheral [Not Recovered/Not Resolved]
  - Pyrexia [Not Recovered/Not Resolved]
  - Paraesthesia [Recovered/Resolved]
